FAERS Safety Report 6740329-5 (Version None)
Quarter: 2010Q2

REPORT INFORMATION
  Report Type: 
  Country: None (occurrence: None)
  Receive Date: 20100525
  Receipt Date: 20100518
  Transmission Date: 20101027
  Serious: Yes (Other)
  Sender: FDA-Public Use
  Company Number: US-GENENTECH-301089

PATIENT
  Sex: Female
  Weight: 49.887 kg

DRUGS (1)
  1. RITUXAN [Suspect]
     Indication: RHEUMATOID ARTHRITIS
     Dosage: 1000 MG, DAYS 1+15
     Route: 042

REACTIONS (2)
  - MUSCULAR WEAKNESS [None]
  - NEUROLOGICAL SYMPTOM [None]
